FAERS Safety Report 8428761-5 (Version None)
Quarter: 2012Q2

REPORT INFORMATION
  Report Type: 
  Country: None (occurrence: None)
  Receive Date: 20120604
  Receipt Date: 20120604
  Transmission Date: 20120825
  Serious: No
  Sender: FDA-Public Use
  Company Number: 2012SP026753

PATIENT
  Age: 10 Month
  Sex: Male

DRUGS (1)
  1. KEIMAX (CEFTIBUTEN) [Suspect]
     Indication: ANGINA PECTORIS
     Dosage: UNKNOWN

REACTIONS (1)
  - OVERDOSE [None]
